FAERS Safety Report 8273112-2 (Version None)
Quarter: 2012Q2

REPORT INFORMATION
  Report Type: 
  Country: None (occurrence: None)
  Receive Date: 20120411
  Receipt Date: 20120403
  Transmission Date: 20120825
  Serious: Yes (Other)
  Sender: FDA-Public Use
  Company Number: GB-JNJFOC-20120403308

PATIENT

DRUGS (32)
  1. DACARBAZINE [Suspect]
     Route: 042
  2. CHLORAMBUCIL [Suspect]
     Route: 048
  3. VINBLASTINE SULFATE [Suspect]
     Indication: HODGKIN'S DISEASE
     Route: 042
  4. PROCARBAZINE HYDROCHLORIDE [Suspect]
     Route: 048
  5. PROCARBAZINE HYDROCHLORIDE [Suspect]
     Route: 048
  6. BLEOMYCIN SULFATE [Suspect]
     Route: 042
  7. CHLORAMBUCIL [Suspect]
     Route: 048
  8. PREDNISOLONE [Suspect]
     Route: 048
  9. BLEOMYCIN SULFATE [Suspect]
     Route: 042
  10. VINCRISTINE [Suspect]
     Indication: HODGKIN'S DISEASE
     Route: 042
  11. VINCRISTINE [Suspect]
     Route: 042
  12. DACARBAZINE [Suspect]
     Indication: HODGKIN'S DISEASE
     Route: 042
  13. PROCARBAZINE HYDROCHLORIDE [Suspect]
     Indication: HODGKIN'S DISEASE
     Route: 048
  14. PREDNISOLONE [Suspect]
     Indication: HODGKIN'S DISEASE
     Route: 048
  15. DOXORUBICIN HCL [Suspect]
     Route: 042
  16. VINBLASTINE SULFATE [Suspect]
     Route: 042
  17. PROCARBAZINE HYDROCHLORIDE [Suspect]
     Route: 048
  18. VINCRISTINE [Suspect]
     Route: 042
  19. CHLORAMBUCIL [Suspect]
     Indication: HODGKIN'S DISEASE
     Route: 048
  20. VINBLASTINE SULFATE [Suspect]
     Route: 042
  21. PREDNISOLONE [Suspect]
     Route: 048
  22. PREDNISOLONE [Suspect]
     Route: 048
  23. DOXORUBICIN HCL [Suspect]
     Indication: HODGKIN'S DISEASE
     Route: 042
  24. CHLORAMBUCIL [Suspect]
     Route: 048
  25. DOXORUBICIN HCL [Suspect]
     Route: 042
  26. DOXORUBICIN HCL [Suspect]
     Route: 042
  27. BLEOMYCIN SULFATE [Suspect]
     Route: 042
  28. DACARBAZINE [Suspect]
     Route: 042
  29. DACARBAZINE [Suspect]
     Route: 042
  30. VINBLASTINE SULFATE [Suspect]
     Route: 042
  31. BLEOMYCIN SULFATE [Suspect]
     Indication: HODGKIN'S DISEASE
     Route: 042
  32. VINCRISTINE [Suspect]
     Route: 042

REACTIONS (1)
  - THYROID CANCER [None]
